FAERS Safety Report 7326005-9 (Version None)
Quarter: 2011Q1

REPORT INFORMATION
  Report Type: 
  Country: None (occurrence: None)
  Receive Date: 20110218
  Receipt Date: 20110208
  Transmission Date: 20110831
  Serious: Yes (Life-Threatening)
  Sender: FDA-Public Use
  Company Number: 824681

PATIENT
  Age: 62 Year
  Sex: Female
  Weight: 134.7183 kg

DRUGS (8)
  1. ONDANSETRON [Suspect]
     Indication: PROPHYLAXIS OF NAUSEA AND VOMITING
  2. SUCCINYLCHOLINE CHLORIDE [Suspect]
     Indication: PRODUCT USED FOR UNKNOWN INDICATION
  3. ESCITALOPRAM [Concomitant]
  4. (NORTRIPTYLINE) [Concomitant]
  5. ASPIRIN [Concomitant]
  6. (ATORVASTATIN) [Concomitant]
  7. TOPIRAMATE [Concomitant]
  8. HEPARIN SODIUM [Concomitant]

REACTIONS (3)
  - VENTRICULAR FIBRILLATION [None]
  - CARDIAC ARREST [None]
  - WOUND SECRETION [None]
